FAERS Safety Report 6521307-8 (Version None)
Quarter: 2009Q4

REPORT INFORMATION
  Report Type: 
  Country: None (occurrence: None)
  Receive Date: 20091230
  Receipt Date: 20091222
  Transmission Date: 20100525
  Serious: Yes (Death, Hospitalization)
  Sender: FDA-Public Use
  Company Number: US-PFIZER INC-2009312800

PATIENT
  Sex: Male
  Weight: 45.35 kg

DRUGS (17)
  1. BLINDED *NO SUBJECT DRUG [Suspect]
     Indication: HIV INFECTION
     Dosage: 300 MG, 2X/DAY
     Route: 048
     Dates: start: 20060330, end: 20070228
  2. BLINDED *PLACEBO [Suspect]
     Indication: HIV INFECTION
     Dosage: 300 MG, 2X/DAY
     Route: 048
     Dates: start: 20060330, end: 20070228
  3. BLINDED MARAVIROC [Suspect]
     Indication: HIV INFECTION
     Dosage: 300 MG, 2X/DAY
     Route: 048
     Dates: start: 20060330, end: 20070228
  4. PROMETHAZINE HYDROCHLORIDE [Concomitant]
     Dosage: 25 MG, 3X/DAY, PRN
     Route: 048
     Dates: start: 20060404
  5. XANAX [Concomitant]
     Dosage: 0.25 MG, 2X/DAY
     Route: 048
     Dates: start: 20030113
  6. MARINOL [Concomitant]
     Dosage: 10 MG, 2X/DAY
     Route: 048
     Dates: start: 19950101
  7. LOMOTIL [Concomitant]
     Dosage: 0.025 MG/2.5 MG, Q 6 HOURS, AS NEEDED
     Route: 048
     Dates: start: 20050323
  8. MULTI-VITAMINS [Concomitant]
     Dosage: 1 TABLET, 1X/DAY
     Route: 048
     Dates: start: 20050301
  9. ENSURE PLUS [Concomitant]
     Dosage: 1 CAN, 3X/DAY
     Route: 048
     Dates: start: 20060628
  10. FLEXERIL [Concomitant]
     Dosage: 10 MG, 3X/DAY
     Route: 048
     Dates: start: 20061115
  11. NORVIR [Concomitant]
     Dosage: 200 MG, 2X/DAY
     Route: 048
     Dates: start: 20060330
  12. FUZEON [Concomitant]
     Dosage: 90 MG, 2X/DAY
     Dates: start: 20060330, end: 20081112
  13. TENOFOVIR [Concomitant]
     Dosage: 300MG QD
     Dates: start: 20060330, end: 20081112
  14. TIPRANAVIR [Concomitant]
     Dosage: 500 MG, 2X/DAY
     Route: 048
     Dates: start: 20060330, end: 20081112
  15. ISENTRESS [Concomitant]
     Dosage: 400 MG, 2X/DAY
     Route: 048
     Dates: start: 20081112
  16. ETRAVIRINE [Concomitant]
     Dosage: 200 MG, 2X/DAY
     Route: 048
     Dates: start: 20081112
  17. PREZISTA [Concomitant]
     Dosage: 600 MG, 2X/DAY
     Route: 048
     Dates: start: 20081112

REACTIONS (2)
  - COLON CANCER [None]
  - LOBAR PNEUMONIA [None]
